FAERS Safety Report 4532384-8 (Version None)
Quarter: 2004Q4

REPORT INFORMATION
  Report Type: 
  Country: None (occurrence: None)
  Receive Date: 20041220
  Receipt Date: 20041210
  Transmission Date: 20050328
  Serious: Yes (Life-Threatening, Hospitalization, Disabling)
  Sender: FDA-Public Use
  Company Number: US-MERCK-0412USA01340

PATIENT
  Age: 48 Year
  Sex: Male

DRUGS (3)
  1. ZOLOFT [Concomitant]
     Route: 065
  2. HYDROCHLOROTHIAZIDE [Concomitant]
     Route: 065
  3. VIOXX [Suspect]
     Indication: NECK PAIN
     Route: 048
     Dates: start: 20000101

REACTIONS (2)
  - ADVERSE EVENT [None]
  - MYOCARDIAL INFARCTION [None]
